FAERS Safety Report 9281419 (Version 1)
Quarter: 2013Q2

REPORT INFORMATION
  Report Type: Spontaneous
  Country: US (occurrence: US)
  Receive Date: 20130509
  Receipt Date: 20130509
  Transmission Date: 20140414
  Serious: No
  Sender: FDA-Public Use
  Company Number: US-ASTRAZENECA-2013SE13596

PATIENT
  Sex: Female

DRUGS (2)
  1. NEXIUM [Suspect]
     Route: 048
  2. PREVACID [Suspect]
     Route: 065

REACTIONS (6)
  - Dyspepsia [Unknown]
  - Chest pain [Unknown]
  - Discomfort [Unknown]
  - Nausea [Unknown]
  - Insomnia [Unknown]
  - Intentional drug misuse [Unknown]
